FAERS Safety Report 7945136-3 (Version None)
Quarter: 2011Q4

REPORT INFORMATION
  Report Type: 
  Country: None (occurrence: None)
  Receive Date: 20111129
  Receipt Date: 20111129
  Transmission Date: 20120403
  Serious: No
  Sender: FDA-Public Use
  Company Number: None

PATIENT
  Age: 74 Year
  Sex: Female
  Weight: 77.564 kg

DRUGS (1)
  1. ALENDRONATE SODIUM [Suspect]
     Indication: OSTEOPENIA
     Dosage: 70 MG
     Route: 048
     Dates: start: 20110315, end: 20111006

REACTIONS (6)
  - LOOSE TOOTH [None]
  - GAIT DISTURBANCE [None]
  - PAIN IN EXTREMITY [None]
  - DYSPHONIA [None]
  - GROIN PAIN [None]
  - BONE PAIN [None]
